FAERS Safety Report 4320824-9 (Version None)
Quarter: 2004Q1

REPORT INFORMATION
  Report Type: 
  Country: None (occurrence: None)
  Receive Date: 20040322
  Receipt Date: 20040322
  Transmission Date: 20041129
  Serious: Yes (Other)
  Sender: FDA-Public Use
  Company Number: None

PATIENT
  Age: 43 Year
  Sex: Female
  Weight: 63.5036 kg

DRUGS (5)
  1. GEODON [Suspect]
     Indication: BIPOLAR II DISORDER
     Dosage: ONE QD PO
     Route: 048
     Dates: start: 20040301, end: 20040306
  2. CELEXA [Suspect]
     Indication: BIPOLAR II DISORDER
     Dosage: 1/2 QD PO
     Route: 048
     Dates: start: 20040123, end: 20040313
  3. L-THYROXEN [Concomitant]
  4. TYLENOL (CAPLET) [Concomitant]
  5. IBUPROFEN [Concomitant]

REACTIONS (8)
  - ABDOMINAL PAIN UPPER [None]
  - CHILLS [None]
  - FEELING ABNORMAL [None]
  - HEADACHE [None]
  - MALAISE [None]
  - MOBILITY DECREASED [None]
  - PYREXIA [None]
  - TREMOR [None]
